FAERS Safety Report 4765654-9 (Version None)
Quarter: 2005Q3

REPORT INFORMATION
  Report Type: 
  Country: None (occurrence: None)
  Receive Date: 20050912
  Receipt Date: 20050509
  Transmission Date: 20060218
  Serious: Yes (Other)
  Sender: FDA-Public Use
  Company Number: PHNR2005AU00851

PATIENT
  Age: 60 Year
  Sex: Female

DRUGS (3)
  1. CLOZARIL [Suspect]
     Indication: SCHIZOPHRENIA
     Dosage: 75-175 MG DAILY
     Dates: start: 20050414, end: 20050511
  2. EFFEXOR [Concomitant]
  3. AMISULPRIDE [Concomitant]

REACTIONS (50)
  - ALBUMIN URINE PRESENT [None]
  - ALPHA 1 MICROGLOBULIN URINE INCREASED [None]
  - ANAEMIA [None]
  - ANTINUCLEAR ANTIBODY POSITIVE [None]
  - BLOOD BICARBONATE DECREASED [None]
  - BLOOD CALCIUM INCREASED [None]
  - BLOOD CHLORIDE DECREASED [None]
  - BLOOD CREATINE PHOSPHOKINASE INCREASED [None]
  - BLOOD CREATININE INCREASED [None]
  - BLOOD DISORDER [None]
  - BLOOD OSMOLARITY INCREASED [None]
  - BLOOD POTASSIUM INCREASED [None]
  - BLOOD SODIUM DECREASED [None]
  - BLOOD TEST ABNORMAL [None]
  - BLOOD UREA INCREASED [None]
  - BLOOD URIC ACID INCREASED [None]
  - C-REACTIVE PROTEIN INCREASED [None]
  - CHEST PAIN [None]
  - COMPLEMENT FACTOR C3 INCREASED [None]
  - CREATININE URINE DECREASED [None]
  - DEEP VEIN THROMBOSIS [None]
  - DISORIENTATION [None]
  - DIZZINESS [None]
  - DRUG LEVEL BELOW THERAPEUTIC [None]
  - ELECTROENCEPHALOGRAM ABNORMAL [None]
  - EOSINOPHIL COUNT INCREASED [None]
  - GLOBULINS DECREASED [None]
  - HAEMATOCRIT DECREASED [None]
  - HAEMOGLOBIN DECREASED [None]
  - IMMUNOGLOBULINS ABNORMAL [None]
  - LYMPHOCYTE COUNT DECREASED [None]
  - MEMORY IMPAIRMENT [None]
  - MENTAL DISORDER [None]
  - METAMYELOCYTE COUNT INCREASED [None]
  - MONOCYTE COUNT INCREASED [None]
  - MUSCULOSKELETAL STIFFNESS [None]
  - NAUSEA [None]
  - NEPHRITIS INTERSTITIAL [None]
  - PROTEIN TOTAL DECREASED [None]
  - PULMONARY EMBOLISM [None]
  - PYREXIA [None]
  - RED BLOOD CELL COUNT DECREASED [None]
  - RED BLOOD CELL SEDIMENTATION RATE INCREASED [None]
  - RENAL IMPAIRMENT [None]
  - SCAN MYOCARDIAL PERFUSION ABNORMAL [None]
  - SEROTONIN SYNDROME [None]
  - TROPONIN I INCREASED [None]
  - URINE ALBUMIN/CREATININE RATIO INCREASED [None]
  - VASCULITIS [None]
  - VOMITING [None]
